FAERS Safety Report 20685863 (Version 3)
Quarter: 2022Q4

REPORT INFORMATION
  Report Type: Report from Study
  Country: US (occurrence: US)
  Receive Date: 20220407
  Receipt Date: 20221209
  Transmission Date: 20230113
  Serious: Yes (Other)
  Sender: FDA-Public Use
  Company Number: US-KYOWAKIRIN-2022BKK004879

PATIENT

DRUGS (2)
  1. CRYSVITA [Suspect]
     Active Substance: BUROSUMAB-TWZA
     Indication: Hereditary hypophosphataemic rickets
     Dosage: 15 MG, EVERY 14 DAYS
     Route: 058
     Dates: start: 20211108
  2. CRYSVITA [Suspect]
     Active Substance: BUROSUMAB-TWZA
     Dosage: 15 MG, EVERY 14 DAYS
     Route: 058
     Dates: start: 20211108

REACTIONS (4)
  - Pneumonia [Unknown]
  - Illness [Unknown]
  - Respiratory syncytial virus infection [Unknown]
  - Incorrect dose administered [Unknown]

NARRATIVE: CASE EVENT DATE: 20211108
